FAERS Safety Report 12395952 (Version 1)
Quarter: 2016Q2

REPORT INFORMATION
  Report Type: Spontaneous
  Country: IE (occurrence: IE)
  Receive Date: 20160523
  Receipt Date: 20160523
  Transmission Date: 20160815
  Serious: Yes (Death, Other)
  Sender: FDA-Public Use
  Company Number: IE-ROXANE LABORATORIES, INC.-2016-RO-00931RO

PATIENT
  Age: 44 Year
  Sex: Male

DRUGS (3)
  1. DOLOPHINE [Suspect]
     Active Substance: METHADONE HYDROCHLORIDE
     Indication: PRODUCT USED FOR UNKNOWN INDICATION
     Route: 065
  2. DIAZEPAM ORAL SOLUTION [Suspect]
     Active Substance: DIAZEPAM
     Indication: PRODUCT USED FOR UNKNOWN INDICATION
     Route: 065
  3. ETHYLPHENIDATE [Suspect]
     Active Substance: ETHYLPHENIDATE
     Indication: PRODUCT USED FOR UNKNOWN INDICATION
     Route: 042

REACTIONS (3)
  - Toxicity to various agents [Fatal]
  - Pneumonia [Fatal]
  - Cachexia [Unknown]
